FAERS Safety Report 5852634-5 (Version None)
Quarter: 2008Q3

REPORT INFORMATION
  Report Type: 
  Country: None (occurrence: None)
  Receive Date: 20080821
  Receipt Date: 20080818
  Transmission Date: 20090109
  Serious: Yes (Life-Threatening, Hospitalization)
  Sender: FDA-Public Use
  Company Number: B0516233A

PATIENT
  Age: 37 Year
  Sex: Male

DRUGS (5)
  1. AMOXICILLIN [Suspect]
     Indication: SINUSITIS
     Dosage: 1000MG TWICE PER DAY
     Route: 048
     Dates: start: 20080201, end: 20080205
  2. AMOXICILLIN [Suspect]
     Indication: PHARYNGITIS
     Dosage: 1000MG TWICE PER DAY
     Route: 048
     Dates: start: 20080220, end: 20080225
  3. JOSACINE [Suspect]
     Indication: PHARYNGITIS
     Route: 048
     Dates: start: 20080228, end: 20080301
  4. PROPOXYPHENE HCL AND ACETAMINOPHEN [Suspect]
     Indication: RENAL COLIC
     Route: 048
     Dates: start: 20080201, end: 20080201
  5. PROFENID [Suspect]
     Indication: RENAL COLIC
     Route: 048
     Dates: start: 20080201, end: 20080201

REACTIONS (9)
  - AGRANULOCYTOSIS [None]
  - BONE MARROW FAILURE [None]
  - ESCHERICHIA SEPSIS [None]
  - HEPATITIS CHOLESTATIC [None]
  - PANCYTOPENIA [None]
  - PROCTITIS [None]
  - PROCTOCOLITIS [None]
  - SEPTIC SHOCK [None]
  - SUBILEUS [None]
